FAERS Safety Report 7645042-8 (Version None)
Quarter: 2011Q3

REPORT INFORMATION
  Report Type: 
  Country: None (occurrence: None)
  Receive Date: 20110729
  Receipt Date: 20110726
  Transmission Date: 20111222
  Serious: Yes (Hospitalization)
  Sender: FDA-Public Use
  Company Number: FR-GLAXOSMITHKLINE-B0735069A

PATIENT
  Sex: Male

DRUGS (3)
  1. BROMAZEPAM [Suspect]
     Indication: PRODUCT USED FOR UNKNOWN INDICATION
     Dosage: 20UNIT PER DAY
     Route: 048
     Dates: start: 20100503, end: 20100503
  2. LAMICTAL [Suspect]
     Indication: EPILEPSY
     Dosage: 2000MG PER DAY
     Route: 048
     Dates: start: 20100503, end: 20100503
  3. NEURONTIN [Suspect]
     Indication: EPILEPSY
     Dosage: 10UNIT PER DAY
     Dates: start: 20100503, end: 20100503

REACTIONS (4)
  - DIZZINESS [None]
  - TOXICITY TO VARIOUS AGENTS [None]
  - INTENTIONAL OVERDOSE [None]
  - PSYCHOMOTOR RETARDATION [None]
